FAERS Safety Report 9833953 (Version 1)
Quarter: 2014Q1

REPORT INFORMATION
  Report Type: Spontaneous
  Country: US (occurrence: US)
  Receive Date: 20140122
  Receipt Date: 20140122
  Transmission Date: 20141002
  Serious: No
  Sender: FDA-Public Use
  Company Number: US-BIOGENIDEC-2014BI006215

PATIENT
  Sex: Female

DRUGS (10)
  1. TECFIDERA [Suspect]
     Indication: MULTIPLE SCLEROSIS
     Route: 048
  2. ASPIRIN [Concomitant]
  3. BACLOFEN [Concomitant]
  4. GABAPENTIN [Concomitant]
  5. LEVOCETIRIZINE DIHYDROCHLORIDE [Concomitant]
  6. LOSARTAN POTASSIUM [Concomitant]
  7. TIZANIDINE HCL [Concomitant]
  8. VITAMIN D [Concomitant]
  9. WELLBUTRIN [Concomitant]
  10. BUPROPION [Concomitant]

REACTIONS (1)
  - Constipation [Unknown]
